FAERS Safety Report 9393756 (Version 1)
Quarter: 2013Q3

REPORT INFORMATION
  Report Type: Spontaneous
  Country: US (occurrence: US)
  Receive Date: 20130710
  Receipt Date: 20130710
  Transmission Date: 20140515
  Serious: No
  Sender: FDA-Public Use
  Company Number: US-PFIZER INC-2013202104

PATIENT
  Age: 54 Year
  Sex: Female
  Weight: 87.53 kg

DRUGS (1)
  1. ACCUPRIL [Suspect]
     Indication: HYPERTENSION
     Dosage: 10 MG, ONCE A DAY
     Route: 048
     Dates: end: 20130607

REACTIONS (3)
  - Drug ineffective [Unknown]
  - Hypertension [Unknown]
  - Headache [Unknown]
